FAERS Safety Report 17267416 (Version 3)
Quarter: 2020Q1

REPORT INFORMATION
  Report Type: Spontaneous
  Country: US (occurrence: US)
  Receive Date: 20200114
  Receipt Date: 20200312
  Transmission Date: 20200409
  Serious: No
  Sender: FDA-Public Use
  Company Number: US-SA-2020SA009095

PATIENT
  Age: 22 Year
  Sex: Male

DRUGS (1)
  1. ADMELOG [Suspect]
     Active Substance: INSULIN LISPRO
     Indication: TYPE 1 DIABETES MELLITUS
     Dosage: 10 UNITS PER MEAL
     Route: 065

REACTIONS (3)
  - Wrong technique in device usage process [Unknown]
  - Blood glucose increased [Unknown]
  - Device operational issue [Unknown]
